FAERS Safety Report 19316726 (Version 2)
Quarter: 2021Q2

REPORT INFORMATION
  Report Type: Spontaneous
  Country: US (occurrence: US)
  Receive Date: 20210527
  Receipt Date: 20210608
  Transmission Date: 20210717
  Serious: No
  Sender: FDA-Public Use
  Company Number: US-JNJFOC-20210534683

PATIENT
  Age: 43 Year
  Sex: Female
  Weight: 64.86 kg

DRUGS (4)
  1. COVID?19 VACCINE [Concomitant]
     Indication: PRODUCT USED FOR UNKNOWN INDICATION
     Dosage: 1ST DOSE
     Route: 065
     Dates: start: 20210307
  2. COVID?19 VACCINE [Concomitant]
     Route: 065
     Dates: start: 20210329
  3. IBUPROFEN. [Suspect]
     Active Substance: IBUPROFEN
     Indication: PAIN
     Route: 065
  4. TYLENOL [Suspect]
     Active Substance: ACETAMINOPHEN
     Indication: PAIN
     Route: 065

REACTIONS (1)
  - Therapeutic product effect incomplete [Unknown]
